FAERS Safety Report 4687232-2 (Version None)
Quarter: 2005Q2

REPORT INFORMATION
  Report Type: 
  Country: None (occurrence: None)
  Receive Date: 20050606
  Receipt Date: 20050523
  Transmission Date: 20051028
  Serious: Yes (Death, Hospitalization)
  Sender: FDA-Public Use
  Company Number: MAG-2005-0000360

PATIENT
  Age: 60 Year
  Sex: Female

DRUGS (8)
  1. OXYCODONE HCL [Suspect]
     Indication: CANCER PAIN
     Dosage: 10 MG, DAILY, ORAL
     Route: 048
     Dates: end: 20050207
  2. NAIXAN (NAPROXEN SODIUM) [Concomitant]
  3. WARFARIN SODIUM [Concomitant]
  4. ZOLPIDEM TARTRATE [Concomitant]
  5. DEXCHLORPHENIRAMINE MALEATE [Concomitant]
  6. OLOPATADINE HYDROCHLORIDE [Concomitant]
  7. SELTOUCH (FELBINAC) [Concomitant]
  8. ALOSENN (TARAXACUM OFFICINALE, SENNA FRUIT, SENNA LEAF, RUBIA ROOT TIN [Concomitant]

REACTIONS (3)
  - CERVIX CARCINOMA [None]
  - DELIRIUM [None]
  - MALIGNANT NEOPLASM PROGRESSION [None]
